FAERS Safety Report 7479288 (Version 4)
Quarter: 2015Q1

REPORT INFORMATION
  Report Type: Report from Study
  Country: FR (occurrence: FR)
  Receive Date: 20100716
  Receipt Date: 20150306
  Transmission Date: 20150721
  Serious: Yes (Hospitalization)
  Sender: FDA-Public Use
  Company Number: PHHO2010FR10383

PATIENT
  Age: 76 Year
  Sex: Male
  Weight: 79 kg

DRUGS (3)
  1. SOLUPRED [Concomitant]
     Active Substance: PREDNISOLONE
     Indication: PRODUCT USED FOR UNKNOWN INDICATION
     Dosage: 7.5 MG, QD
     Route: 048
     Dates: start: 19961011, end: 20100611
  2. EVEROLIMUS [Suspect]
     Active Substance: EVEROLIMUS
     Indication: HEART TRANSPLANT
     Dosage: 1.5 MG, QD
     Route: 048
     Dates: start: 20100526, end: 20100611
  3. NEORAL [Suspect]
     Active Substance: CYCLOSPORINE
     Indication: HEART TRANSPLANT
     Dosage: 160 UG, QD
     Route: 048
     Dates: start: 19961011, end: 20100611

REACTIONS (8)
  - Portal hypertension [Recovered/Resolved]
  - Productive cough [Recovered/Resolved]
  - Scrotal ulcer [Recovered/Resolved]
  - Rales [Recovered/Resolved]
  - Hepatosplenomegaly [Recovered/Resolved]
  - Mouth ulceration [Recovered/Resolved]
  - Escherichia urinary tract infection [Recovered/Resolved]
  - Bronchitis [Recovered/Resolved]

NARRATIVE: CASE EVENT DATE: 20100503
